FAERS Safety Report 6978870-2 (Version None)
Quarter: 2010Q3

REPORT INFORMATION
  Report Type: 
  Country: None (occurrence: None)
  Receive Date: 20100913
  Receipt Date: 20100908
  Transmission Date: 20110219
  Serious: Yes (Congenital Anomaly)
  Sender: FDA-Public Use
  Company Number: FR-CEPHALON-2010004788

PATIENT
  Sex: Female
  Weight: 4 kg

DRUGS (2)
  1. MODAFINIL [Suspect]
     Route: 064
  2. ANTI-D IMMUNOGLOBULIN [Suspect]
     Dates: start: 20090520

REACTIONS (1)
  - CONGENITAL FOOT MALFORMATION [None]
